FAERS Safety Report 9442703 (Version 1)
Quarter: 2013Q3

REPORT INFORMATION
  Report Type: Spontaneous
  Country: US (occurrence: None)
  Receive Date: 20130805
  Receipt Date: 20130805
  Transmission Date: 20140515
  Serious: No
  Sender: FDA-Public Use
  Company Number: None

PATIENT
  Age: 88 Year
  Sex: Female
  Weight: 54.89 kg

DRUGS (1)
  1. CYMBALTA [Suspect]
     Dosage: YEARS

REACTIONS (1)
  - Tongue biting [None]
